FAERS Safety Report 18054006 (Version 1)
Quarter: 2020Q3

REPORT INFORMATION
  Report Type: Spontaneous
  Country: US (occurrence: US)
  Receive Date: 20200722
  Receipt Date: 20200722
  Transmission Date: 20201103
  Serious: No
  Sender: FDA-Public Use
  Company Number: US-PFIZER INC-2017315534

PATIENT
  Age: 67 Year
  Sex: Female

DRUGS (1)
  1. DUAVEE [Suspect]
     Active Substance: BAZEDOXIFENE ACETATE\ESTROGENS, CONJUGATED
     Dosage: UNK
     Dates: end: 202003

REACTIONS (3)
  - Depression [Unknown]
  - Irritability [Unknown]
  - Hot flush [Unknown]

NARRATIVE: CASE EVENT DATE: 2020
